FAERS Safety Report 16995681 (Version 2)
Quarter: 2019Q4

REPORT INFORMATION
  Report Type: Report from Study
  Country: RO (occurrence: RO)
  Receive Date: 20191105
  Receipt Date: 20191117
  Transmission Date: 20200122
  Serious: Yes (Other)
  Sender: FDA-Public Use
  Company Number: RO-TEVA-2019-RO-1132271

PATIENT

DRUGS (4)
  1. LOMUSTINE. [Suspect]
     Active Substance: LOMUSTINE
     Indication: LYMPHOMA
     Dosage: ON DAY -6
     Route: 048
  2. MELPHALAN. [Suspect]
     Active Substance: MELPHALAN
     Indication: LYMPHOMA
     Dosage: ON DAY -1
     Route: 042
  3. CYTARABINE. [Suspect]
     Active Substance: CYTARABINE
     Indication: LYMPHOMA
     Dosage: 1600 MG/M2 (TOTAL DOSE) TWICE DAILY DIVIDED OVER 4 DAYS FROM DAY -5 TO DAY -2
     Route: 042
  4. ETOPOSIDE. [Suspect]
     Active Substance: ETOPOSIDE
     Indication: LYMPHOMA
     Dosage: 800 MG/M2 (TOTAL DOSE) DIVIDED OVER 4 DAYS FROM DAYS-5 TO-2
     Route: 042

REACTIONS (4)
  - Anaemia [Unknown]
  - Pleurisy [Unknown]
  - Neutropenia [Unknown]
  - Thrombocytopenia [Unknown]
